FAERS Safety Report 6257693-6 (Version None)
Quarter: 2009Q3

REPORT INFORMATION
  Report Type: 
  Country: None (occurrence: None)
  Receive Date: 20090706
  Receipt Date: 20090629
  Transmission Date: 20100115
  Serious: Yes (Congenital Anomaly, Other)
  Sender: FDA-Public Use
  Company Number: DK-AVENTIS-200915039GDDC

PATIENT
  Age: 41 Year
  Sex: Female

DRUGS (6)
  1. LANTUS [Suspect]
     Route: 058
     Dates: start: 20060601
  2. NOVORAPID [Concomitant]
     Route: 058
     Dates: start: 20080418
  3. FOLIC ACID [Concomitant]
     Indication: PREGNANCY
  4. VITAMINS [Concomitant]
  5. AMPICILLIN [Concomitant]
     Route: 048
     Dates: start: 20080418, end: 20080420
  6. SELEXID                            /00445302/ [Concomitant]
     Route: 048
     Dates: end: 20080411

REACTIONS (4)
  - ABORTION INDUCED [None]
  - DRUG EXPOSURE DURING PREGNANCY [None]
  - PREGNANCY [None]
  - TRISOMY 21 [None]
